FAERS Safety Report 19468270 (Version 1)
Quarter: 2021Q2

REPORT INFORMATION
  Report Type: Other
  Country: NL (occurrence: NL)
  Receive Date: 20210628
  Receipt Date: 20210628
  Transmission Date: 20210717
  Serious: Yes (Other)
  Sender: FDA-Public Use
  Company Number: NL-ROCHE-2854859

PATIENT

DRUGS (1)
  1. RITUXIMAB. [Suspect]
     Active Substance: RITUXIMAB
     Indication: SCLERITIS
     Route: 042

REACTIONS (4)
  - Treatment failure [Unknown]
  - Hypogammaglobulinaemia [Unknown]
  - Lung neoplasm malignant [Unknown]
  - Infection [Unknown]
